FAERS Safety Report 18678931 (Version 1)
Quarter: 2020Q4

REPORT INFORMATION
  Report Type: Spontaneous
  Country: CA (occurrence: CA)
  Receive Date: 20201229
  Receipt Date: 20201229
  Transmission Date: 20210114
  Serious: Yes (Congenital Anomaly, Other)
  Sender: FDA-Public Use
  Company Number: CA-JNJFOC-20201242612

PATIENT
  Age: 10 Year
  Sex: Female
  Weight: 11 kg

DRUGS (7)
  1. TOPAMAX [Suspect]
     Active Substance: TOPIRAMATE
     Indication: SEIZURE
     Route: 048
  2. TOPAMAX [Suspect]
     Active Substance: TOPIRAMATE
     Route: 048
  3. CALCIUM CARBONATE. [Concomitant]
     Active Substance: CALCIUM CARBONATE
     Indication: PRODUCT USED FOR UNKNOWN INDICATION
     Route: 065
  4. L-CARNITINE [LEVOCARNITINE] [Concomitant]
     Active Substance: LEVOCARNITINE
     Indication: PRODUCT USED FOR UNKNOWN INDICATION
     Route: 065
  5. VALPROIC ACID. [Interacting]
     Active Substance: VALPROIC ACID
     Indication: SEIZURE
     Route: 065
  6. LANSOPRAZOLE. [Concomitant]
     Active Substance: LANSOPRAZOLE
     Indication: PRODUCT USED FOR UNKNOWN INDICATION
     Route: 065
  7. VALPROIC ACID. [Interacting]
     Active Substance: VALPROIC ACID
     Route: 065

REACTIONS (12)
  - Blood alkaline phosphatase increased [Recovered/Resolved]
  - Drug interaction [Recovered/Resolved]
  - Renal tubular acidosis [Recovered/Resolved]
  - Metabolic acidosis [Recovered/Resolved]
  - Fanconi syndrome [Recovered/Resolved]
  - Hypophosphataemia [Recovered/Resolved]
  - Hypophosphataemic osteomalacia [Recovered/Resolved]
  - Nephrocalcinosis [Recovered/Resolved]
  - Femur fracture [Recovered/Resolved]
  - Glycosuria [Recovered/Resolved]
  - Proteinuria [Recovered/Resolved]
  - Urine calcium/creatinine ratio increased [Recovered/Resolved]
